FAERS Safety Report 7522763-9 (Version None)
Quarter: 2011Q2

REPORT INFORMATION
  Report Type: 
  Country: None (occurrence: None)
  Receive Date: 20110603
  Receipt Date: 20110601
  Transmission Date: 20111010
  Serious: Yes (Other)
  Sender: FDA-Public Use
  Company Number: DE-SANOFI-AVENTIS-2011SA034296

PATIENT
  Age: 69 Year
  Sex: Male
  Weight: 95 kg

DRUGS (1)
  1. DRONEDARONE HCL [Suspect]
     Dosage: 2X400MG
     Route: 048
     Dates: start: 20101001, end: 20110501

REACTIONS (1)
  - TORSADE DE POINTES [None]
